FAERS Safety Report 19117390 (Version 1)
Quarter: 2021Q2

REPORT INFORMATION
  Report Type: Spontaneous
  Country: FR (occurrence: FR)
  Receive Date: 20210409
  Receipt Date: 20210409
  Transmission Date: 20210717
  Serious: Yes (Other)
  Sender: FDA-Public Use
  Company Number: FR-TEVA-2021-FR-1897245

PATIENT
  Age: 80 Year
  Sex: Male
  Weight: 100 kg

DRUGS (5)
  1. TRAMADOL LP [Suspect]
     Active Substance: TRAMADOL HYDROCHLORIDE
     Route: 065
  2. METFORMIN [Suspect]
     Active Substance: METFORMIN HYDROCHLORIDE
     Dosage: 1500 MILLIGRAM DAILY;
     Route: 065
  3. HYDROXYZINE [Suspect]
     Active Substance: HYDROXYZINE HYDROCHLORIDE
     Indication: AGITATION
     Route: 065
  4. FUROSEMIDE. [Suspect]
     Active Substance: FUROSEMIDE
     Dosage: 40 MILLIGRAM DAILY;
     Route: 065
  5. ALFUZOSINE LP [Suspect]
     Active Substance: ALFUZOSIN HYDROCHLORIDE
     Dosage: 10 MILLIGRAM DAILY; TO TAKE IN THE EVENING
     Route: 065

REACTIONS (10)
  - Agitation [Unknown]
  - Cardiac failure [Unknown]
  - Fall [Unknown]
  - Asthma [Unknown]
  - Contraindicated product administered [Unknown]
  - Anxiety [Unknown]
  - Respiratory failure [Unknown]
  - Diabetic metabolic decompensation [Unknown]
  - Urinary retention [Unknown]
  - Gout [Unknown]
